FAERS Safety Report 16708949 (Version 1)
Quarter: 2019Q3

REPORT INFORMATION
  Report Type: Spontaneous
  Country: DE (occurrence: DE)
  Receive Date: 20190816
  Receipt Date: 20190816
  Transmission Date: 20191004
  Serious: Yes (Hospitalization)
  Sender: FDA-Public Use
  Company Number: DE-TEVA-2019-DE-1093109

PATIENT
  Age: 71 Year
  Sex: Male
  Weight: 90 kg

DRUGS (5)
  1. THIAMIN (VITAMIN B1)/PYRIDOXIN (VITAMIN B6)/CYANOCOBALAMIN [Concomitant]
     Dosage: 100|100 MG, 1-0-0-0, TABLETS
     Route: 048
  2. HEPA-MERZ [Concomitant]
     Dosage: NK MG, 1-0-0-0, SACHET
     Route: 048
  3. SPIRONOLACTON [Suspect]
     Active Substance: SPIRONOLACTONE
     Dosage: 100 MG, 1-0-0-0, TABLETS
     Route: 048
  4. COLECALCIFEROL [Concomitant]
     Active Substance: CHOLECALCIFEROL
     Dosage: 1000 IU, 1-0-0-0, CAPSULES
     Route: 048
  5. TORASEMID [Suspect]
     Active Substance: TORSEMIDE
     Dosage: 20 MG, 2-1-0-0, TABLETS
     Route: 048

REACTIONS (4)
  - Tremor [Unknown]
  - General physical health deterioration [Unknown]
  - Gait disturbance [Unknown]
  - Product prescribing error [Unknown]
